FAERS Safety Report 7055208-6 (Version None)
Quarter: 2010Q4

REPORT INFORMATION
  Report Type: 
  Country: None (occurrence: None)
  Receive Date: 20101021
  Receipt Date: 20101007
  Transmission Date: 20110411
  Serious: Yes (Hospitalization)
  Sender: FDA-Public Use
  Company Number: ES-RANBAXY-2010RR-36148

PATIENT
  Age: 76 Year
  Sex: Female
  Weight: 70 kg

DRUGS (6)
  1. RAMIPRIL [Suspect]
     Indication: HYPERTENSION
     Dosage: 5 MG, QD
  2. METFORMIN [Concomitant]
     Dosage: 1300 MG, UNK
  3. AMILORIDE HCL AND HYDROCHLOROTHIAZIDE [Concomitant]
     Dosage: UNK MG, QD
  4. GLUCOSAMIN [Concomitant]
     Dosage: 1500 MG, QD
  5. TRIMETAZIDINE [Concomitant]
     Dosage: 20 MG, TID
  6. ACENOCOUMAROL [Concomitant]

REACTIONS (1)
  - INAPPROPRIATE ANTIDIURETIC HORMONE SECRETION [None]
